FAERS Safety Report 8093399-9 (Version None)
Quarter: 2012Q1

REPORT INFORMATION
  Report Type: 
  Country: None (occurrence: None)
  Receive Date: 20120131
  Receipt Date: 20120127
  Transmission Date: 20120608
  Serious: Yes (Hospitalization, Other)
  Sender: FDA-Public Use
  Company Number: US-PFIZER INC-2012023431

PATIENT
  Sex: Male
  Weight: 91 kg

DRUGS (8)
  1. PROTONIX [Concomitant]
     Indication: CARDIAC DISORDER
     Dosage: 40 MG, DAILY
  2. WARFARIN SODIUM [Concomitant]
     Dosage: UNK
     Dates: end: 20110101
  3. PLAVIX [Concomitant]
     Indication: THROMBOSIS PROPHYLAXIS
     Dosage: 75 MG, DAILY
  4. METOPROLOL [Concomitant]
     Indication: HYPERTENSION
     Dosage: 100 MG, DAILY
  5. BENICAR [Concomitant]
     Indication: HYPERTENSION
     Dosage: UNK
     Route: 048
  6. METOPROLOL [Concomitant]
     Indication: CARDIAC DISORDER
  7. BENICAR [Concomitant]
     Indication: CARDIAC DISORDER
  8. LIPITOR [Suspect]
     Indication: THROMBOSIS PROPHYLAXIS
     Dosage: 20 MG, DAILY
     Route: 048
     Dates: start: 20010101

REACTIONS (2)
  - HAEMORRHAGE [None]
  - MYOCARDIAL INFARCTION [None]
